FAERS Safety Report 13760201 (Version 1)
Quarter: 2017Q3

REPORT INFORMATION
  Report Type: Spontaneous
  Country: DK (occurrence: DK)
  Receive Date: 20170717
  Receipt Date: 20170717
  Transmission Date: 20171127
  Serious: Yes (Hospitalization)
  Sender: FDA-Public Use
  Company Number: DK-NOVOPROD-552864

PATIENT
  Age: 62 Year
  Sex: Female

DRUGS (2)
  1. ACTIVELLE [Suspect]
     Active Substance: ESTRADIOL\NORETHINDRONE ACETATE
     Indication: MENOPAUSAL SYMPTOMS
     Dosage: 0,5 + 1 MG, 1 TAB, QD
     Route: 048
     Dates: start: 20130715, end: 20130910
  2. LANSOPRAZOL [Concomitant]
     Active Substance: LANSOPRAZOLE
     Dosage: 30 MG, QD
     Route: 048

REACTIONS (5)
  - Fatigue [Not Recovered/Not Resolved]
  - Cerebral thrombosis [Recovered/Resolved with Sequelae]
  - Disturbance in attention [Not Recovered/Not Resolved]
  - Nervousness [Not Recovered/Not Resolved]
  - Hemiplegia [Recovered/Resolved]

NARRATIVE: CASE EVENT DATE: 201309
